FAERS Safety Report 4854430-4 (Version None)
Quarter: 2005Q4

REPORT INFORMATION
  Report Type: 
  Country: None (occurrence: None)
  Receive Date: 20051213
  Receipt Date: 20051021
  Transmission Date: 20060501
  Serious: Yes (Hospitalization)
  Sender: FDA-Public Use
  Company Number: EWC050644509

PATIENT
  Age: 1 Day
  Weight: 3.9 kg

DRUGS (2)
  1. ZYPREXA [Suspect]
     Dosage: TRANSPLACENTAL
     Route: 064
  2. ALOPAM (OXAZEPAM) [Concomitant]

REACTIONS (7)
  - DRUG EXPOSURE DURING PREGNANCY [None]
  - DRUG WITHDRAWAL SYNDROME NEONATAL [None]
  - HAEMOGLOBIN DECREASED [None]
  - NEONATAL INFECTION [None]
  - NEONATAL PNEUMONIA [None]
  - POLYCYTHAEMIA [None]
  - TENSION [None]
